FAERS Safety Report 19642570 (Version 1)
Quarter: 2021Q3

REPORT INFORMATION
  Report Type: Spontaneous
  Country: JP (occurrence: JP)
  Receive Date: 20210730
  Receipt Date: 20210730
  Transmission Date: 20211014
  Serious: Yes (Other)
  Sender: FDA-Public Use
  Company Number: JP-PFIZER INC-202100911578

PATIENT
  Age: 72 Year
  Sex: Male

DRUGS (2)
  1. CORTRIL [Suspect]
     Active Substance: HYDROCORTISONE
     Indication: ADRENOCORTICOTROPIC HORMONE DEFICIENCY
     Dosage: 20 MG
     Route: 048
  2. CORTRIL [Suspect]
     Active Substance: HYDROCORTISONE
     Dosage: 30 MG
     Route: 048

REACTIONS (3)
  - Dementia [Unknown]
  - Restlessness [Unknown]
  - Delusion [Unknown]
